FAERS Safety Report 6236697-3 (Version None)
Quarter: 2009Q2

REPORT INFORMATION
  Report Type: 
  Country: None (occurrence: None)
  Receive Date: 20090619
  Receipt Date: 20090313
  Transmission Date: 20091009
  Serious: No
  Sender: FDA-Public Use
  Company Number: US-ASTRAZENECA-2009UW06718

PATIENT
  Age: 17 Year
  Sex: Male

DRUGS (4)
  1. ATACAND [Suspect]
     Indication: MIGRAINE
     Route: 048
  2. CENTRUM [Concomitant]
  3. PROBIOTICS [Concomitant]
  4. VITAMIN B-12 [Concomitant]

REACTIONS (3)
  - DIZZINESS [None]
  - FATIGUE [None]
  - PAIN IN EXTREMITY [None]
